FAERS Safety Report 6231813-1 (Version None)
Quarter: 2009Q2

REPORT INFORMATION
  Report Type: 
  Country: None (occurrence: None)
  Receive Date: 20090611
  Receipt Date: 20090611
  Transmission Date: 20091009
  Serious: No
  Sender: FDA-Public Use
  Company Number: None

PATIENT
  Age: 82 Year
  Sex: Female
  Weight: 74.6 kg

DRUGS (1)
  1. ROCURONIUM 10 MG/ML HOSPIRA [Suspect]
     Dates: start: 20090501, end: 20090610

REACTIONS (2)
  - DRUG INEFFECTIVE [None]
  - MUSCLE TWITCHING [None]
